FAERS Safety Report 19888046 (Version 2)
Quarter: 2021Q4

REPORT INFORMATION
  Report Type: Report from Study
  Country: US (occurrence: US)
  Receive Date: 20210927
  Receipt Date: 20211130
  Transmission Date: 20220303
  Serious: Yes (Hospitalization, Other)
  Sender: FDA-Public Use
  Company Number: US-NOVARTISPH-NVSC2021US213372

PATIENT
  Age: 15 Year
  Sex: Male

DRUGS (2)
  1. ILARIS [Suspect]
     Active Substance: CANAKINUMAB
     Indication: Haemophagocytic lymphohistiocytosis
     Dosage: UNK
     Route: 065
     Dates: start: 20160801
  2. ILARIS [Suspect]
     Active Substance: CANAKINUMAB
     Indication: Still^s disease

REACTIONS (19)
  - Mental disorder [Recovering/Resolving]
  - Suicidal ideation [Recovering/Resolving]
  - Seizure [Unknown]
  - Syncope [Unknown]
  - Autism spectrum disorder [Unknown]
  - Fatigue [Unknown]
  - Dizziness [Unknown]
  - Asthenia [Unknown]
  - Panic attack [Unknown]
  - Fall [Unknown]
  - Crying [Unknown]
  - Juvenile idiopathic arthritis [Unknown]
  - Ill-defined disorder [Unknown]
  - Injury [Unknown]
  - Migraine [Unknown]
  - Anger [Unknown]
  - Visual impairment [Unknown]
  - Rash [Unknown]
  - Drug ineffective [Unknown]

NARRATIVE: CASE EVENT DATE: 20200401
